FAERS Safety Report 25067585 (Version 5)
Quarter: 2025Q4

REPORT INFORMATION
  Report Type: Spontaneous
  Country: US (occurrence: US)
  Receive Date: 20250312
  Receipt Date: 20251024
  Transmission Date: 20260118
  Serious: No
  Sender: BRISTOL-MYERS SQUIBB COMPANY
  Company Number: US-BRISTOL-MYERS SQUIBB COMPANY-2025-036752

PATIENT
  Age: 87 Year
  Sex: Female

DRUGS (5)
  1. LENALIDOMIDE [Suspect]
     Active Substance: LENALIDOMIDE
     Indication: Plasma cell myeloma
  2. LENALIDOMIDE [Suspect]
     Active Substance: LENALIDOMIDE
  3. LENALIDOMIDE [Suspect]
     Active Substance: LENALIDOMIDE
  4. LENALIDOMIDE [Suspect]
     Active Substance: LENALIDOMIDE
  5. LENALIDOMIDE [Suspect]
     Active Substance: LENALIDOMIDE

REACTIONS (6)
  - Fatigue [Not Recovered/Not Resolved]
  - Frequent bowel movements [Not Recovered/Not Resolved]
  - Product distribution issue [Unknown]
  - Therapy interrupted [Unknown]
  - Diarrhoea [Not Recovered/Not Resolved]
  - Dehydration [Not Recovered/Not Resolved]
